FAERS Safety Report 9377471 (Version 2)
Quarter: 2013Q4

REPORT INFORMATION
  Report Type: Spontaneous
  Country: US (occurrence: US)
  Receive Date: 20130701
  Receipt Date: 20131004
  Transmission Date: 20140711
  Serious: Yes (Other)
  Sender: FDA-Public Use
  Company Number: US-PFIZER INC-2013191215

PATIENT
  Age: 55 Year
  Sex: Female

DRUGS (5)
  1. PREMPRO [Suspect]
     Indication: MENOPAUSAL SYMPTOMS
     Dosage: UNK
     Route: 048
  2. LOTENSIN HCT [Concomitant]
     Dosage: UNK
  3. LOVASTATIN [Concomitant]
     Dosage: UNK
  4. ATIVAN [Concomitant]
     Dosage: UNK
  5. AMBIEN [Concomitant]
     Dosage: UNK

REACTIONS (2)
  - Vaginal haemorrhage [Unknown]
  - Drug hypersensitivity [Unknown]
